FAERS Safety Report 15764782 (Version 1)
Quarter: 2018Q4

REPORT INFORMATION
  Report Type: Report from Study
  Country: JP (occurrence: JP)
  Receive Date: 20181227
  Receipt Date: 20181227
  Transmission Date: 20190205
  Serious: Yes (Hospitalization)
  Sender: FDA-Public Use
  Company Number: JP-ACTELION-A-CH2017-158817

PATIENT
  Age: 77 Year
  Sex: Female

DRUGS (13)
  1. MARZULENE-S [Concomitant]
     Active Substance: SODIUM GUALENATE
  2. CONSTAN [Concomitant]
     Active Substance: ALPRAZOLAM
  3. CALFINA [Concomitant]
     Active Substance: ALFACALCIDOL
  4. HERBESSER [Concomitant]
     Active Substance: DILTIAZEM HYDROCHLORIDE
  5. RABEPRAZOLE NA [Concomitant]
     Active Substance: RABEPRAZOLE SODIUM
  6. UPTRAVI [Suspect]
     Active Substance: SELEXIPAG
     Indication: PULMONARY ARTERIAL HYPERTENSION
     Dosage: 0.2 MG, BID
     Route: 048
     Dates: start: 20161208, end: 20161216
  7. ADCIRCA [Concomitant]
     Active Substance: TADALAFIL
  8. AMITIZA [Concomitant]
     Active Substance: LUBIPROSTONE
  9. METHYCOOL [Concomitant]
     Active Substance: METHYLCOBALAMIN
  10. EPADEL [Concomitant]
     Active Substance: ICOSAPENT
  11. OPSUMIT [Suspect]
     Active Substance: MACITENTAN
     Indication: PULMONARY ARTERIAL HYPERTENSION
     Dosage: 10 MG, QD
     Route: 048
     Dates: start: 20150622, end: 20170905
  12. PREDNISOLONE. [Concomitant]
     Active Substance: PREDNISOLONE
  13. BROTIZOLAM [Concomitant]
     Active Substance: BROTIZOLAM

REACTIONS (4)
  - Glossitis [Recovering/Resolving]
  - Decreased appetite [Recovering/Resolving]
  - Pneumonia [Unknown]
  - Diarrhoea [Recovering/Resolving]

NARRATIVE: CASE EVENT DATE: 20161105
